APPROVED DRUG PRODUCT: ERYTHROMYCIN ESTOLATE
Active Ingredient: ERYTHROMYCIN ESTOLATE
Strength: EQ 250MG BASE
Dosage Form/Route: CAPSULE;ORAL
Application: A062237 | Product #001
Applicant: IVAX PHARMACEUTICALS INC SUB TEVA PHARMACEUTICALS USA
Approved: Approved Prior to Jan 1, 1982 | RLD: No | RS: No | Type: DISCN